FAERS Safety Report 9398660 (Version 1)
Quarter: 2013Q3

REPORT INFORMATION
  Report Type: Report from Study
  Country: US (occurrence: US)
  Receive Date: 20130712
  Receipt Date: 20130712
  Transmission Date: 20140515
  Serious: Yes (Other)
  Sender: FDA-Public Use
  Company Number: US-US-EMD SERONO, INC.-7223097

PATIENT
  Age: 33 Year
  Sex: Female

DRUGS (1)
  1. REBIF [Suspect]
     Indication: MULTIPLE SCLEROSIS
     Route: 058
     Dates: start: 20130408

REACTIONS (5)
  - Homicidal ideation [Recovering/Resolving]
  - Suicidal behaviour [Recovering/Resolving]
  - Depression [Recovering/Resolving]
  - Fibula fracture [Unknown]
  - Gait disturbance [Unknown]
